FAERS Safety Report 9258586 (Version 1)
Quarter: 2013Q2

REPORT INFORMATION
  Report Type: Spontaneous
  Country: US (occurrence: None)
  Receive Date: 20130425
  Receipt Date: 20130425
  Transmission Date: 20140414
  Serious: Yes (Life-Threatening, Other)
  Sender: FDA-Public Use
  Company Number: None

PATIENT
  Age: 48 Year
  Sex: Female

DRUGS (11)
  1. CHANTIX [Suspect]
     Indication: SMOKING CESSATION THERAPY
     Dosage: WAS IN WEEK 3....1MG, BID, PO
     Dates: start: 20130402, end: 20130423
  2. PREDNISONE [Concomitant]
  3. PROAIR [Concomitant]
  4. OXYCONTIN [Concomitant]
  5. CYMBALTA [Concomitant]
  6. OMEPRAZOLE [Concomitant]
  7. SAVELLA [Concomitant]
  8. NABUMETONE [Concomitant]
  9. TRAZODONE [Concomitant]
  10. LYRICA [Concomitant]
  11. CARBIDOPA/LEVODOPA [Concomitant]

REACTIONS (2)
  - Suicidal ideation [None]
  - Thinking abnormal [None]
